FAERS Safety Report 9186656 (Version 2)
Quarter: 2013Q2

REPORT INFORMATION
  Report Type: Spontaneous
  Country: US (occurrence: US)
  Receive Date: 20130325
  Receipt Date: 20130416
  Transmission Date: 20140414
  Serious: Yes (Hospitalization)
  Sender: FDA-Public Use
  Company Number: US-SHIRE-ALL1-2013-01783

PATIENT
  Sex: Male
  Weight: 32.88 kg

DRUGS (3)
  1. VYVANSE [Suspect]
     Indication: ATTENTION DEFICIT/HYPERACTIVITY DISORDER
     Dosage: 50 MG, 1X/DAY:QD
     Route: 048
     Dates: start: 20071113, end: 20130329
  2. INTUNIV [Suspect]
     Indication: ATTENTION DEFICIT/HYPERACTIVITY DISORDER
     Dosage: 3 MG, 1X/DAY:QD
     Route: 048
     Dates: start: 20111010
  3. INTUNIV [Suspect]
     Dosage: UNK, UNKNOWN
     Route: 048
     Dates: start: 2011

REACTIONS (2)
  - Haematemesis [Recovered/Resolved]
  - Abdominal pain [Unknown]
